FAERS Safety Report 10103053 (Version 2)
Quarter: 2014Q2

REPORT INFORMATION
  Report Type: Spontaneous
  Country: CH (occurrence: None)
  Receive Date: 20140502
  Receipt Date: 20140502
  Transmission Date: 20141212
  Serious: Yes (Other)
  Sender: FDA-Public Use
  Company Number: 20140209

PATIENT
  Age: 20 Year
  Sex: Male

DRUGS (4)
  1. FERINJECT [Suspect]
     Indication: IRON DEFICIENCY ANAEMIA
     Route: 042
     Dates: start: 20140306, end: 20140306
  2. ASACOLON (LACOTSE MONOHYDRATE/MAGNESIUM STEARATE/MESALAZINE/METHYLACRYLIC ACID/METHYL) [Concomitant]
  3. IMURAN (AZATHIOPRINE/HYPERMELLOSE, IRON MONOHYDRATE/MACROGOL/AMGNESIUM [Concomitant]
  4. LOSEPINE (LACOTSE MONOHYDRATE/MAGNESIUM STEARATE/MICROCRYSTALLINE CELLUOSE/RED IRON OX) [Concomitant]

REACTIONS (5)
  - Nausea [None]
  - Abdominal pain [None]
  - Vision blurred [None]
  - Hypotension [None]
  - Pallor [None]
